FAERS Safety Report 17324927 (Version 1)
Quarter: 2020Q1

REPORT INFORMATION
  Report Type: Report from Study
  Country: KR (occurrence: KR)
  Receive Date: 20200127
  Receipt Date: 20200127
  Transmission Date: 20200409
  Serious: Yes (Other)
  Sender: FDA-Public Use
  Company Number: KR-JNJFOC-20200122675

PATIENT

DRUGS (1)
  1. SPORANOX [Suspect]
     Active Substance: ITRACONAZOLE
     Indication: FUNGAL INFECTION
     Route: 048

REACTIONS (4)
  - Febrile neutropenia [Unknown]
  - Systemic mycosis [Unknown]
  - Stomatitis [Unknown]
  - Drug tolerance decreased [Unknown]
